FAERS Safety Report 4270027-1 (Version None)
Quarter: 2004Q1

REPORT INFORMATION
  Report Type: 
  Country: None (occurrence: None)
  Receive Date: 20040114
  Receipt Date: 20021216
  Transmission Date: 20041129
  Serious: No
  Sender: FDA-Public Use
  Company Number: US-GLAXOSMITHKLINE-A0389499A

PATIENT
  Sex: Male

DRUGS (1)
  1. WELLBUTRIN [Suspect]
     Indication: EX-SMOKER
     Dosage: 300MG PER DAY
     Route: 048
     Dates: start: 20000101

REACTIONS (3)
  - DRUG INEFFECTIVE [None]
  - RASH [None]
  - URTICARIA [None]
